FAERS Safety Report 9689025 (Version 2)
Quarter: 2013Q4

REPORT INFORMATION
  Report Type: Spontaneous
  Country: RU (occurrence: RU)
  Receive Date: 20131114
  Receipt Date: 20131202
  Transmission Date: 20140711
  Serious: Yes (Other)
  Sender: FDA-Public Use
  Company Number: RU-PFIZER INC-2013321399

PATIENT
  Age: 50 Year
  Sex: Female
  Weight: 90 kg

DRUGS (1)
  1. ACCUPRO [Suspect]
     Indication: HYPERTENSION
     Dosage: 5 MG (TAB) ONCE DAILY
     Route: 048
     Dates: start: 2012, end: 2012

REACTIONS (5)
  - Intentional drug misuse [Recovered/Resolved]
  - Drug intolerance [Recovered/Resolved]
  - Asthma [Recovered/Resolved]
  - Urticaria [Recovered/Resolved]
  - Allergic oedema [Recovered/Resolved]
